FAERS Safety Report 15786261 (Version 1)
Quarter: 2019Q1

REPORT INFORMATION
  Report Type: Spontaneous
  Country: US (occurrence: US)
  Receive Date: 20190103
  Receipt Date: 20190103
  Transmission Date: 20190417
  Serious: No
  Sender: FDA-Public Use
  Company Number: US-ANTARES PHARMA, INC.-2018-SPO-SU-0566

PATIENT
  Sex: Female

DRUGS (1)
  1. SUMATRIPTAN. [Suspect]
     Active Substance: SUMATRIPTAN
     Indication: INTRACRANIAL PRESSURE INCREASED
     Dosage: 4 MG/0.5ML, PRN
     Route: 058

REACTIONS (3)
  - Injection site bruising [Unknown]
  - Off label use [Unknown]
  - Device deployment issue [Unknown]
